FAERS Safety Report 12561553 (Version 1)
Quarter: 2016Q3

REPORT INFORMATION
  Report Type: Spontaneous
  Country: MX (occurrence: MX)
  Receive Date: 20160715
  Receipt Date: 20160715
  Transmission Date: 20161109
  Serious: Yes (Hospitalization, Other)
  Sender: FDA-Public Use
  Company Number: MX-GLAXOSMITHKLINE-MX2016GSK099719

PATIENT
  Age: 8 Year
  Sex: Female

DRUGS (1)
  1. FLIXOTIDE [Suspect]
     Active Substance: FLUTICASONE PROPIONATE
     Indication: WHEEZING
     Dosage: UNK UNK, UNK
     Route: 055

REACTIONS (4)
  - Cough [Unknown]
  - Depressed level of consciousness [Unknown]
  - Tachycardia [Unknown]
  - Adams-Stokes syndrome [Unknown]

NARRATIVE: CASE EVENT DATE: 20150522
